FAERS Safety Report 11268179 (Version 1)
Quarter: 2015Q3

REPORT INFORMATION
  Report Type: Spontaneous
  Country: GL (occurrence: DK)
  Receive Date: 20150714
  Receipt Date: 20150714
  Transmission Date: 20151125
  Serious: Yes (Life-Threatening, Hospitalization, Disabling)
  Sender: FDA-Public Use
  Company Number: GL-009507513-1308DNK000036

PATIENT
  Age: 32 Year
  Sex: Female

DRUGS (1)
  1. MARVELON [Suspect]
     Active Substance: DESOGESTREL\ETHINYL ESTRADIOL
     Indication: PREMENSTRUAL SYNDROME
     Dosage: DOSAGE: 1 TABLET PER DAY
     Route: 048
     Dates: start: 201303, end: 20130703

REACTIONS (5)
  - Dysarthria [Recovered/Resolved]
  - Cerebral infarction [Recovering/Resolving]
  - Facial paresis [Recovering/Resolving]
  - Hemiparesis [Recovering/Resolving]
  - Dizziness [Recovered/Resolved]

NARRATIVE: CASE EVENT DATE: 20130703
